FAERS Safety Report 23568882 (Version 1)
Quarter: 2024Q1

REPORT INFORMATION
  Report Type: Report from Study
  Country: US (occurrence: US)
  Receive Date: 20240227
  Receipt Date: 20240227
  Transmission Date: 20240409
  Serious: No
  Sender: FDA-Public Use
  Company Number: US-ORG100014127-2023000268

PATIENT
  Age: 54 Year
  Sex: Female

DRUGS (2)
  1. METOPIRONE [Suspect]
     Active Substance: METYRAPONE
     Indication: Adrenal gland cancer
     Dosage: 250 MG: TAKE 1 CAPSULE (250 MG) BY MOUTH 4 TIMES PER DAY FOR 2 WEEKS
     Route: 048
     Dates: start: 20230124, end: 202302
  2. METOPIRONE [Suspect]
     Active Substance: METYRAPONE
     Indication: Adrenal gland cancer
     Dosage: TAKE 2 CAPSULES (500 MG) BY MOUTH 4 TIMES PER DAY
     Route: 048
     Dates: start: 202302

REACTIONS (1)
  - Off label use [Not Recovered/Not Resolved]
